FAERS Safety Report 6444789-9 (Version None)
Quarter: 2009Q4

REPORT INFORMATION
  Report Type: 
  Country: None (occurrence: None)
  Receive Date: 20091118
  Receipt Date: 20091104
  Transmission Date: 20100525
  Serious: Yes (Hospitalization, Other)
  Sender: FDA-Public Use
  Company Number: PHHY2009US49756

PATIENT
  Age: 51 Year
  Sex: Female

DRUGS (3)
  1. METOPROLOL [Suspect]
  2. ACETAMINOPHEN W/ CODEINE [Suspect]
  3. VENLAFAXINE [Suspect]

REACTIONS (13)
  - ACUTE MYOCARDIAL INFARCTION [None]
  - BLOOD ALCOHOL INCREASED [None]
  - BLOOD CREATINE PHOSPHOKINASE INCREASED [None]
  - COMA SCALE ABNORMAL [None]
  - CORONARY ARTERY DISEASE [None]
  - DRUG LEVEL INCREASED [None]
  - HYPOTENSION [None]
  - METABOLIC ACIDOSIS [None]
  - OVERDOSE [None]
  - RESPIRATORY ACIDOSIS [None]
  - TACHYCARDIA [None]
  - TROPONIN INCREASED [None]
  - WHITE BLOOD CELL COUNT INCREASED [None]
